FAERS Safety Report 26005437 (Version 2)
Quarter: 2025Q4

REPORT INFORMATION
  Report Type: Report from Study
  Country: EU (occurrence: EU)
  Receive Date: 20251106
  Receipt Date: 20251110
  Transmission Date: 20260117
  Serious: Yes (Hospitalization)
  Sender: BAXTER
  Company Number: EU-BAXTER-2025BAX023119

PATIENT
  Age: 34 Year
  Sex: Male
  Weight: 60.6 kg

DRUGS (4)
  1. OLIMEL E [Suspect]
     Active Substance: AMINO ACIDS\DEXTROSE\ELECTROLYTES NOS\SOYBEAN OIL
     Indication: Parenteral nutrition
     Dosage: 2000 ML, INFUSED OVER 24 HOURS
     Route: 042
     Dates: start: 20251006, end: 20251017
  2. CERNEVIT [Suspect]
     Active Substance: VITAMINS
     Indication: Parenteral nutrition
     Dosage: 20 ML, CERNEVIT + ADDEL TRACE (MICRONUTRIENT SET), INFUSED WITH OLIMEL 7,6%
     Route: 042
     Dates: start: 20251006, end: 20251017
  3. ELECTROLYTES NOS\MINERALS [Suspect]
     Active Substance: ELECTROLYTES NOS\MINERALS
     Indication: Parenteral nutrition
     Dosage: 20 ML, CERNEVIT + ADDEL TRACE (MICRONUTRIENT SET), INFUSED WITH OLIMEL 7,6%
     Route: 042
     Dates: start: 20251006, end: 20251017
  4. UNSPECIFIED INGREDIENT [Suspect]
     Active Substance: UNSPECIFIED INGREDIENT
     Dosage: UNK
     Route: 065

REACTIONS (6)
  - Throat tightness [Recovering/Resolving]
  - Cardiovascular disorder [Recovering/Resolving]
  - Dizziness [Recovering/Resolving]
  - Nausea [Recovering/Resolving]
  - Chest discomfort [Recovering/Resolving]
  - Hyperhidrosis [Recovering/Resolving]

NARRATIVE: CASE EVENT DATE: 20251017
